FAERS Safety Report 18191597 (Version 1)
Quarter: 2020Q3

REPORT INFORMATION
  Report Type: Spontaneous
  Country: US (occurrence: US)
  Receive Date: 20200824
  Receipt Date: 20200824
  Transmission Date: 20201103
  Serious: No
  Sender: FDA-Public Use
  Company Number: None

PATIENT
  Age: 25 Year
  Sex: Female
  Weight: 90.72 kg

DRUGS (2)
  1. MIRENA [Suspect]
     Active Substance: LEVONORGESTREL
     Dates: start: 20200103
  2. BENADRYL [Concomitant]
     Active Substance: DIPHENHYDRAMINE HYDROCHLORIDE

REACTIONS (9)
  - Muscle twitching [None]
  - Complication associated with device [None]
  - Mood swings [None]
  - Dysmenorrhoea [None]
  - Grip strength decreased [None]
  - Tremor [None]
  - Migraine [None]
  - Insomnia [None]
  - Impaired quality of life [None]

NARRATIVE: CASE EVENT DATE: 20200103
